FAERS Safety Report 17046347 (Version 1)
Quarter: 2019Q4

REPORT INFORMATION
  Report Type: Report from Study
  Country: None (occurrence: CO)
  Receive Date: 20191119
  Receipt Date: 20191119
  Transmission Date: 20200122
  Serious: Yes (Other)
  Sender: FDA-Public Use
  Company Number: CO-ABBVIE-19K-036-3006775-00

PATIENT
  Age: 67 Year
  Sex: Female
  Weight: 61 kg

DRUGS (1)
  1. HUMIRA [Suspect]
     Active Substance: ADALIMUMAB
     Indication: RHEUMATOID ARTHRITIS
     Route: 058
     Dates: end: 20190917

REACTIONS (6)
  - Bronchial disorder [Recovering/Resolving]
  - Pyrexia [Recovering/Resolving]
  - Choking sensation [Recovering/Resolving]
  - Aphonia [Recovering/Resolving]
  - Malaise [Recovering/Resolving]
  - Productive cough [Recovering/Resolving]

NARRATIVE: CASE EVENT DATE: 201909
